FAERS Safety Report 18961061 (Version 1)
Quarter: 2021Q1

REPORT INFORMATION
  Report Type: Spontaneous
  Country: BR (occurrence: BR)
  Receive Date: 20210303
  Receipt Date: 20210303
  Transmission Date: 20210420
  Serious: No
  Sender: FDA-Public Use
  Company Number: BR-LUPIN PHARMACEUTICALS INC.-2021-02577

PATIENT
  Age: 32 Year
  Sex: Male

DRUGS (4)
  1. STANOZOLOL [Concomitant]
     Active Substance: STANOZOLOL
     Indication: SUPPLEMENTATION THERAPY
     Dosage: 100 MILLIGRAM,TWICE A WEEK
     Route: 030
  2. DURATESTON [Concomitant]
     Active Substance: TESTOSTERONE
     Indication: SUPPLEMENTATION THERAPY
     Dosage: 1 DOSAGE FORM,SOLUTION OF FOUR MOLECULES OF SYNTHETIC TESTOSTERONE, COMPOSED OF PROPIONATE, FEMPROPI
     Route: 030
  3. HYDROXYCHLOROQUINE SULFATE. [Suspect]
     Active Substance: HYDROXYCHLOROQUINE SULFATE
     Indication: DRY EYE
     Dosage: UNK
     Route: 065
  4. CYCLOSPORINE. [Suspect]
     Active Substance: CYCLOSPORINE
     Indication: DRY EYE
     Dosage: UNK
     Route: 061

REACTIONS (1)
  - Drug ineffective [Unknown]
